FAERS Safety Report 13399019 (Version 1)
Quarter: 2017Q2

REPORT INFORMATION
  Report Type: Report from Study
  Country: IL (occurrence: IL)
  Receive Date: 20170404
  Receipt Date: 20170404
  Transmission Date: 20170830
  Serious: Yes (Hospitalization)
  Sender: FDA-Public Use
  Company Number: IL-BAXTER-2017BAX013498

PATIENT
  Age: 45 Year
  Sex: Male

DRUGS (28)
  1. ENDOXAN-1G [Suspect]
     Active Substance: CYCLOPHOSPHAMIDE
     Dosage: C2D1
     Route: 041
     Dates: start: 20140720
  2. ENDOXAN-1G [Suspect]
     Active Substance: CYCLOPHOSPHAMIDE
     Dosage: C2D3; MOST RECENT DOSE PRIOR TO EVENT
     Route: 041
     Dates: start: 20140722
  3. ACYCLOVIR. [Concomitant]
     Active Substance: ACYCLOVIR
     Indication: PROPHYLAXIS
     Route: 048
     Dates: start: 20140624, end: 20140731
  4. PHENERGAN [Concomitant]
     Active Substance: PROMETHAZINE HYDROCHLORIDE
     Indication: PROPHYLAXIS
     Dosage: ON TREATMENT DAYS
     Route: 042
     Dates: start: 20140624, end: 20140624
  5. NACL [Concomitant]
     Active Substance: SODIUM CHLORIDE
     Indication: PRODUCT USED FOR UNKNOWN INDICATION
     Route: 042
     Dates: start: 20140624
  6. FLUDARABINE [Suspect]
     Active Substance: FLUDARABINE PHOSPHATE
     Dosage: C2D3; MOST RECENT DOSE PRIOR TO SAE
     Route: 041
     Dates: start: 20140722
  7. FLUDARABINE [Suspect]
     Active Substance: FLUDARABINE PHOSPHATE
     Dosage: ON DAYS 1, 2, AND 3 OF CYCLE 3 TO 6
     Route: 041
     Dates: end: 20140817
  8. PHENERGAN [Concomitant]
     Active Substance: PROMETHAZINE HYDROCHLORIDE
     Dosage: SINGLE DOSE
     Route: 042
     Dates: start: 20140625, end: 20140625
  9. ENDOXAN-1G [Suspect]
     Active Substance: CYCLOPHOSPHAMIDE
     Dosage: C2D2
     Route: 041
     Dates: start: 20140721
  10. OBINUTUZUMAB [Suspect]
     Active Substance: OBINUTUZUMAB
     Dosage: C1D8
     Route: 041
     Dates: start: 20140701
  11. OBINUTUZUMAB [Suspect]
     Active Substance: OBINUTUZUMAB
     Dosage: C1D2; SPLIT DOSE
     Route: 041
     Dates: start: 20140625
  12. OBINUTUZUMAB [Suspect]
     Active Substance: OBINUTUZUMAB
     Dosage: C1D15
     Route: 041
     Dates: start: 20140708
  13. OBINUTUZUMAB [Suspect]
     Active Substance: OBINUTUZUMAB
     Dosage: ON DAY 1 OF CYCLE 3 TO CYCLE 6
     Route: 041
     Dates: end: 20140817
  14. FLUDARABINE [Suspect]
     Active Substance: FLUDARABINE PHOSPHATE
     Indication: CHRONIC LYMPHOCYTIC LEUKAEMIA
     Dosage: ON DAYS 1, 2 AND 3 OF CYCLE 1; INFUSION
     Route: 041
     Dates: start: 20140624
  15. FLUDARABINE [Suspect]
     Active Substance: FLUDARABINE PHOSPHATE
     Dosage: C2D1
     Route: 041
     Dates: start: 20140720
  16. PARACETAMOL [Concomitant]
     Active Substance: ACETAMINOPHEN
     Indication: PROPHYLAXIS
     Dosage: ON TREATMENT DAYS
     Route: 048
     Dates: start: 20140624, end: 20140720
  17. DEXAMETHASONE. [Concomitant]
     Active Substance: DEXAMETHASONE
     Indication: PROPHYLAXIS
     Dosage: ON TREATMENT DAYS
     Route: 042
     Dates: start: 20140624, end: 20140720
  18. OBINUTUZUMAB [Suspect]
     Active Substance: OBINUTUZUMAB
     Indication: CHRONIC LYMPHOCYTIC LEUKAEMIA
     Dosage: INFUSION; C1D1 SPLIT DOSE
     Route: 041
     Dates: start: 20140624
  19. OBINUTUZUMAB [Suspect]
     Active Substance: OBINUTUZUMAB
     Dosage: C2D1; MOST RECENT DOSE PRIOR TO EVENT
     Route: 041
     Dates: start: 20140720
  20. ENDOXAN-1G [Suspect]
     Active Substance: CYCLOPHOSPHAMIDE
     Dosage: ON DAYS 1, 2, AND 3 OF CYCLE 3 TO CYCLE 6
     Route: 041
     Dates: end: 20140817
  21. KYTRIL [Concomitant]
     Active Substance: GRANISETRON HYDROCHLORIDE
     Indication: PROPHYLAXIS
     Dosage: SINGLE DOSE
     Route: 042
     Dates: start: 20140625, end: 20140626
  22. KYTRIL [Concomitant]
     Active Substance: GRANISETRON HYDROCHLORIDE
     Dosage: SINGLE DOSE
     Route: 042
     Dates: start: 20140721, end: 20140722
  23. ENDOXAN-1G [Suspect]
     Active Substance: CYCLOPHOSPHAMIDE
     Indication: CHRONIC LYMPHOCYTIC LEUKAEMIA
     Dosage: ON DAYS 1, 2 AND 3 OF CYCLE 1
     Route: 041
     Dates: start: 20140624
  24. FLUDARABINE [Suspect]
     Active Substance: FLUDARABINE PHOSPHATE
     Dosage: C2D2
     Route: 041
     Dates: start: 20140721
  25. RESPRIM FORTE [Concomitant]
     Active Substance: SULFAMETHOXAZOLE\TRIMETHOPRIM
     Indication: PROPHYLAXIS
     Route: 048
     Dates: start: 20140624, end: 201408
  26. ALLORIL [Concomitant]
     Indication: PROPHYLAXIS
     Route: 048
     Dates: start: 20140624, end: 20140727
  27. PHENERGAN [Concomitant]
     Active Substance: PROMETHAZINE HYDROCHLORIDE
     Dosage: ON TREATMENT DAYS
     Route: 042
     Dates: start: 20140702, end: 20140702
  28. LORATADINE. [Concomitant]
     Active Substance: LORATADINE
     Indication: PROPHYLAXIS
     Route: 048
     Dates: start: 20140624, end: 20140720

REACTIONS (1)
  - Haemolytic anaemia [Recovered/Resolved with Sequelae]

NARRATIVE: CASE EVENT DATE: 20140730
